FAERS Safety Report 9580181 (Version 1)
Quarter: 2013Q3

REPORT INFORMATION
  Report Type: Spontaneous
  Country: US (occurrence: None)
  Receive Date: 20130916
  Receipt Date: 20130916
  Transmission Date: 20140515
  Serious: Yes (Other)
  Sender: FDA-Public Use
  Company Number: JPI-P-031424

PATIENT
  Age: 32 Year
  Sex: Male

DRUGS (10)
  1. XYREM (500 MILLIGRAM/MILLILITERS, SOLUTION) (SODIUM OXYBATE) [Suspect]
     Indication: NARCOLEPSY
     Dosage: 6 GM (3GM, 2 IN 1 D),ORAL
     Route: 048
     Dates: start: 20120530, end: 2012
  2. DESMOPRESS ACETATE [Concomitant]
  3. TESTOSTERONE [Concomitant]
  4. HYDROCORTISONE [Concomitant]
  5. LEVOTHYROXINE SODIUM [Concomitant]
  6. LISDEXAMFETAMINE DIMESYLATE [Concomitant]
  7. VERAPAMIL [Concomitant]
  8. MULTIVITAMINS [Concomitant]
  9. PSYLLIUM HYDROPHILIC MUCILLOID [Concomitant]
  10. CO ENZYME Q10 [Concomitant]

REACTIONS (8)
  - Fall [None]
  - Ankle fracture [None]
  - Drooling [None]
  - Yawning [None]
  - Drug effect decreased [None]
  - Somnambulism [None]
  - Glassy eyes [None]
  - Somnolence [None]
